FAERS Safety Report 6204870-6 (Version None)
Quarter: 2009Q2

REPORT INFORMATION
  Report Type: 
  Country: None (occurrence: None)
  Receive Date: 20090527
  Receipt Date: 20090520
  Transmission Date: 20091009
  Serious: Yes (Other)
  Sender: FDA-Public Use
  Company Number: US-GENENTECH-282011

PATIENT
  Sex: Female
  Weight: 76.19 kg

DRUGS (1)
  1. BEVACIZUMAB [Suspect]
     Indication: BREAST CANCER
     Dosage: 820 MG, Q2W
     Route: 042
     Dates: start: 20081021, end: 20090217

REACTIONS (1)
  - SKIN ULCER [None]
